FAERS Safety Report 24575982 (Version 2)
Quarter: 2024Q4

REPORT INFORMATION
  Report Type: Spontaneous
  Country: BR (occurrence: BR)
  Receive Date: 20241104
  Receipt Date: 20241113
  Transmission Date: 20250114
  Serious: Yes (Other)
  Sender: GE HEALTHCARE
  Company Number: BR-GE HEALTHCARE-2024CSU012386

PATIENT
  Age: 39 Year
  Sex: Female
  Weight: 66 kg

DRUGS (1)
  1. OMNISCAN [Suspect]
     Active Substance: GADODIAMIDE
     Indication: Magnetic resonance imaging abdominal
     Dosage: 10 ML, TOTAL
     Route: 042
     Dates: start: 20240903, end: 20240903

REACTIONS (2)
  - Petechiae [Recovered/Resolved]
  - Pruritus [Recovered/Resolved]

NARRATIVE: CASE EVENT DATE: 20240903
